FAERS Safety Report 24730620 (Version 1)
Quarter: 2024Q4

REPORT INFORMATION
  Report Type: Report from Study
  Country: CA (occurrence: CA)
  Receive Date: 20241213
  Receipt Date: 20241213
  Transmission Date: 20250115
  Serious: Yes (Hospitalization, Other)
  Sender: ALEXION PHARMACEUTICALS
  Company Number: CA-AstraZeneca-CH-00763266A

PATIENT
  Age: 68 Year

DRUGS (9)
  1. BENRALIZUMAB [Suspect]
     Active Substance: BENRALIZUMAB
     Indication: Asthma
     Dosage: 30 MILLIGRAM
  2. BENRALIZUMAB [Suspect]
     Active Substance: BENRALIZUMAB
     Dosage: 30 MILLIGRAM
     Route: 058
  3. BENRALIZUMAB [Suspect]
     Active Substance: BENRALIZUMAB
     Dosage: 30 MILLIGRAM
  4. BENRALIZUMAB [Suspect]
     Active Substance: BENRALIZUMAB
     Dosage: 30 MILLIGRAM
     Route: 058
  5. PROLIA [Concomitant]
     Active Substance: DENOSUMAB
     Indication: Arthritis
     Route: 065
  6. PROLIA [Concomitant]
     Active Substance: DENOSUMAB
     Route: 065
  7. ZENHALE [Concomitant]
     Active Substance: FORMOTEROL FUMARATE\MOMETASONE FUROATE
     Dosage: 200/5MCG 2INH BID
  8. GLYCOPYRROLATE [Concomitant]
     Active Substance: GLYCOPYRROLATE
     Dosage: 50MCG 1INH DIE
  9. VENTOLIN [Concomitant]
     Active Substance: ALBUTEROL SULFATE
     Dosage: 100MCG 2INH BID PRN

REACTIONS (4)
  - Pneumonia [Unknown]
  - Pulmonary oedema [Unknown]
  - Arthritis [Unknown]
  - Inappropriate schedule of product administration [Unknown]
